FAERS Safety Report 6841864-1 (Version None)
Quarter: 2010Q3

REPORT INFORMATION
  Report Type: 
  Country: None (occurrence: None)
  Receive Date: 20100714
  Receipt Date: 20070716
  Transmission Date: 20110219
  Serious: No
  Sender: FDA-Public Use
  Company Number: US-PFIZER INC-2007059826

PATIENT
  Sex: Female
  Weight: 90.909 kg

DRUGS (5)
  1. CHANTIX [Suspect]
     Indication: SMOKING CESSATION THERAPY
     Dates: start: 20070715, end: 20070715
  2. HYZAAR [Concomitant]
  3. VYTORIN [Concomitant]
  4. LEVOTHYROXINE SODIUM [Concomitant]
     Indication: THYROID DISORDER
  5. PLAVIX [Concomitant]

REACTIONS (5)
  - ABDOMINAL PAIN UPPER [None]
  - HEADACHE [None]
  - MALAISE [None]
  - NAUSEA [None]
  - SOMNOLENCE [None]
